FAERS Safety Report 7439760-4 (Version None)
Quarter: 2011Q2

REPORT INFORMATION
  Report Type: 
  Country: None (occurrence: None)
  Receive Date: 20110427
  Receipt Date: 20110422
  Transmission Date: 20111010
  Serious: Yes (Other)
  Sender: FDA-Public Use
  Company Number: AR-PFIZER INC-2011081242

PATIENT
  Age: 2 Year
  Sex: Male
  Weight: 13 kg

DRUGS (2)
  1. IBUPIRAC [Suspect]
     Indication: PYREXIA
     Dosage: UNK
     Dates: start: 20110301, end: 20110301
  2. PARACETAMOL [Suspect]
     Indication: PYREXIA
     Dosage: UNK
     Dates: start: 20110301, end: 20110301

REACTIONS (1)
  - HYPOTHERMIA [None]
